FAERS Safety Report 6261393-6 (Version None)
Quarter: 2009Q3

REPORT INFORMATION
  Report Type: 
  Country: None (occurrence: None)
  Receive Date: 20090709
  Receipt Date: 20090629
  Transmission Date: 20100115
  Serious: Yes (Death)
  Sender: FDA-Public Use
  Company Number: JP-ASTRAZENECA-2009SE01660

PATIENT
  Age: 909 Month
  Sex: Female
  Weight: 82 kg

DRUGS (7)
  1. ECARD [Suspect]
     Indication: HYPERTENSION
     Route: 048
     Dates: start: 20090416
  2. ADALAT CC [Concomitant]
     Route: 048
     Dates: start: 20090117
  3. ZYLORIC [Concomitant]
     Route: 048
     Dates: start: 20090117
  4. EPL [Concomitant]
     Route: 048
     Dates: start: 20090117
  5. URSO 250 [Concomitant]
     Route: 048
     Dates: start: 20090117
  6. DIART [Concomitant]
     Route: 048
     Dates: start: 20090416
  7. HYPEN [Concomitant]
     Indication: BACK PAIN
     Route: 048
     Dates: start: 20080213

REACTIONS (1)
  - DROWNING [None]
